FAERS Safety Report 6722951-5 (Version None)
Quarter: 2010Q2

REPORT INFORMATION
  Report Type: 
  Country: None (occurrence: None)
  Receive Date: 20100513
  Receipt Date: 20100503
  Transmission Date: 20101027
  Serious: Yes (Hospitalization)
  Sender: FDA-Public Use
  Company Number: US-BIOGENIDEC-2010BI010349

PATIENT
  Age: 69 Year
  Sex: Female

DRUGS (1)
  1. AVONEX [Suspect]
     Indication: MULTIPLE SCLEROSIS
     Route: 030
     Dates: start: 20060429

REACTIONS (4)
  - INFECTION IN AN IMMUNOCOMPROMISED HOST [None]
  - INTRACRANIAL ANEURYSM [None]
  - PNEUMONIA [None]
  - RUPTURED CEREBRAL ANEURYSM [None]
